FAERS Safety Report 11572451 (Version 1)
Quarter: 2015Q3

REPORT INFORMATION
  Report Type: Spontaneous
  Country: US (occurrence: US)
  Receive Date: 20150916
  Receipt Date: 20150916
  Transmission Date: 20151125
  Serious: No
  Sender: FDA-Public Use
  Company Number: US-ELI_LILLY_AND_COMPANY-US200910003241

PATIENT
  Sex: Female

DRUGS (1)
  1. FORTEO [Suspect]
     Active Substance: TERIPARATIDE
     Indication: OSTEOPOROSIS
     Dosage: 20 UG, DAILY (1/D)
     Dates: start: 2009

REACTIONS (12)
  - Constipation [Unknown]
  - Headache [Unknown]
  - Hypertension [Unknown]
  - Muscle spasms [Unknown]
  - Rhinitis [Unknown]
  - Dizziness [Unknown]
  - Arthralgia [Unknown]
  - Nausea [Unknown]
  - Tooth disorder [Unknown]
  - Neck pain [Unknown]
  - Heart rate increased [Unknown]
  - Blood uric acid increased [Unknown]
